FAERS Safety Report 11065058 (Version 2)
Quarter: 2015Q2

REPORT INFORMATION
  Report Type: Spontaneous
  Country: US (occurrence: US)
  Receive Date: 20150424
  Receipt Date: 20150525
  Transmission Date: 20150821
  Serious: No
  Sender: FDA-Public Use
  Company Number: US-JNJFOC-20150114374

PATIENT
  Age: 70 Year
  Sex: Female
  Weight: 84.82 kg

DRUGS (3)
  1. LACRISERT [Concomitant]
     Active Substance: HYDROXYPROPYL CELLULOSE
     Indication: LACRIMATION DECREASED
     Route: 065
  2. TOPAMAX [Suspect]
     Active Substance: TOPIRAMATE
     Indication: SEIZURE
     Route: 048
     Dates: start: 2007, end: 201410
  3. PHENOBARBITAL. [Suspect]
     Active Substance: PHENOBARBITAL
     Indication: PRODUCT USED FOR UNKNOWN INDICATION
     Route: 065
     Dates: start: 201410, end: 201501

REACTIONS (5)
  - Diplopia [Not Recovered/Not Resolved]
  - Weight increased [Not Recovered/Not Resolved]
  - Eye irritation [Not Recovered/Not Resolved]
  - Abdominal pain upper [Recovered/Resolved]
  - Alopecia [Recovered/Resolved]

NARRATIVE: CASE EVENT DATE: 201409
